FAERS Safety Report 15619269 (Version 1)
Quarter: 2018Q4

REPORT INFORMATION
  Report Type: Spontaneous
  Country: US (occurrence: US)
  Receive Date: 20181114
  Receipt Date: 20181114
  Transmission Date: 20190205
  Serious: No
  Sender: FDA-Public Use
  Company Number: US-SA-2018SA313207

PATIENT
  Age: 14 Year
  Sex: Male
  Weight: 53.4 kg

DRUGS (2)
  1. LUMIZYME [Suspect]
     Active Substance: ALGLUCOSIDASE ALFA
     Dosage: 2150 MG, QW
     Route: 041
     Dates: start: 201409
  2. LUMIZYME [Suspect]
     Active Substance: ALGLUCOSIDASE ALFA
     Dosage: 2150 MG, QW
     Route: 041

REACTIONS (1)
  - Respiratory disorder [Unknown]
